FAERS Safety Report 9168542 (Version 2)
Quarter: 2013Q1

REPORT INFORMATION
  Report Type: Spontaneous
  Country: US (occurrence: US)
  Receive Date: 20130318
  Receipt Date: 20130328
  Transmission Date: 20140127
  Serious: No
  Sender: FDA-Public Use
  Company Number: US-BAYER-2013-032299

PATIENT
  Age: 71 Year
  Sex: Male
  Weight: 113 kg

DRUGS (3)
  1. ALEVE TABLET [Suspect]
     Dosage: 2 DF, QD
     Route: 048
     Dates: start: 2004
  2. BAYER ASPIRIN REGIMEN ADULT LOW STRENGTH [Concomitant]
     Dosage: UNK,DAILY
     Route: 048
  3. SUGAR PILL FOR DIABETES [Concomitant]

REACTIONS (1)
  - Incorrect drug administration duration [None]
